FAERS Safety Report 8158016-8 (Version None)
Quarter: 2012Q1

REPORT INFORMATION
  Report Type: 
  Country: None (occurrence: None)
  Receive Date: 20120222
  Receipt Date: 20120213
  Transmission Date: 20120608
  Serious: Yes (Hospitalization)
  Sender: FDA-Public Use
  Company Number: PHHY2011US67781

PATIENT
  Sex: Male
  Weight: 166.6 kg

DRUGS (14)
  1. ZOCOR [Concomitant]
     Dosage: 40 MG, QD
     Dates: start: 20100811
  2. FUROSEMIDE [Concomitant]
     Dosage: 40 MG, QD
     Dates: start: 20110425
  3. BACTROBAN                               /NET/ [Concomitant]
     Dosage: 2 %, (AS DIRECTED)
  4. OMEPRAZOLE [Concomitant]
     Dosage: 40 MG, QD
  5. NEORAL [Suspect]
     Dosage: 50 MG, BID
     Dates: start: 20110726
  6. VALTURNA [Concomitant]
     Dosage: (300-320MG)UKN, QD
     Dates: start: 20110722
  7. ACETAMINOPHEN AND HYDROCODONE BITARTRATE [Concomitant]
     Dosage: UNK UKN, UNK(PRN)
  8. COLCHICINE [Concomitant]
     Dosage: 0.6 MG, BID
     Dates: start: 20110413
  9. VITAMIN D [Concomitant]
     Dosage: 1000 IU, BID
     Dates: start: 20080711
  10. NEORAL [Suspect]
     Indication: RENAL TRANSPLANT
     Dosage: 100 MG, BID
     Dates: start: 20060101
  11. CLONIDINE HCL [Concomitant]
     Dosage: 0.2 MG, BID
  12. METOPROLOL SUCCINATE [Concomitant]
     Dosage: 100 MG, UNK
     Dates: start: 20091216
  13. MYFORTIC [Suspect]
     Indication: RENAL TRANSPLANT
     Dosage: 720 MG, BID
     Dates: start: 20060101
  14. TEMSIROLIMUS [Concomitant]
     Dosage: 5 MG, QD
     Dates: start: 20100927

REACTIONS (9)
  - BLOOD CREATININE INCREASED [None]
  - HYDRONEPHROSIS [None]
  - URETERITIS [None]
  - URINARY RETENTION [None]
  - CREATININE RENAL CLEARANCE ABNORMAL [None]
  - ENTEROBACTER INFECTION [None]
  - URINARY TRACT INFECTION [None]
  - IMMUNOSUPPRESSANT DRUG LEVEL DECREASED [None]
  - VITAMIN D DECREASED [None]
